FAERS Safety Report 12415503 (Version 2)
Quarter: 2016Q3

REPORT INFORMATION
  Report Type: Spontaneous
  Country: US (occurrence: US)
  Receive Date: 20160530
  Receipt Date: 20160727
  Transmission Date: 20161109
  Serious: No
  Sender: FDA-Public Use
  Company Number: US-PFIZER INC-2016247490

PATIENT
  Age: 64 Year
  Sex: Female
  Weight: 59 kg

DRUGS (14)
  1. PAROXETINE. [Concomitant]
     Active Substance: PAROXETINE
     Indication: DEPRESSION
     Dosage: 20 MG, 1X/DAY
  2. AMLODIPINE [Concomitant]
     Active Substance: AMLODIPINE BESYLATE
     Indication: HYPERTENSION
     Dosage: 5 MG, DAILY, ONE A DAY
     Dates: start: 201512
  3. CALCIUM [Concomitant]
     Active Substance: CALCIUM
     Indication: OSTEOPOROSIS
     Dosage: `2 DF, DAILY
  4. POTASSIUM [Concomitant]
     Active Substance: POTASSIUM
     Indication: BLOOD POTASSIUM DECREASED
     Dosage: 10 MG, 1X/DAY
  5. FISH OIL [Concomitant]
     Active Substance: FISH OIL
     Indication: ROUTINE HEALTH MAINTENANCE
     Dosage: 1000 MG, 1X/DAY
  6. ATORVASTATIN CALCIUM. [Suspect]
     Active Substance: ATORVASTATIN CALCIUM
     Indication: BLOOD CHOLESTEROL
     Dosage: 20 MG, UNK
  7. ATORVASTATIN CALCIUM. [Suspect]
     Active Substance: ATORVASTATIN CALCIUM
     Dosage: 40 MG, 1X/DAY
     Dates: start: 201601
  8. ARIMIDEX [Concomitant]
     Active Substance: ANASTROZOLE
     Dosage: 75 MG, 1X/DAY
     Dates: start: 201511
  9. ONE A DAY /07499601/ [Concomitant]
     Dosage: UNK UNK, 4X/DAY
  10. FLAXSEED [Concomitant]
     Active Substance: FLAX SEED
     Indication: DRY EYE
  11. LOSARTAN. [Concomitant]
     Active Substance: LOSARTAN
     Indication: HYPERTENSION
     Dosage: 1X/DAY, 100/25MG
  12. FLAXSEED [Concomitant]
     Active Substance: FLAX SEED
     Indication: ROUTINE HEALTH MAINTENANCE
     Dosage: 1200 MG, DAILY
  13. FISH OIL [Concomitant]
     Active Substance: FISH OIL
     Indication: DRY EYE
  14. IBRANCE [Concomitant]
     Active Substance: PALBOCICLIB
     Indication: BREAST CANCER STAGE IV
     Dosage: 75 MG, DAILY, FOR 21 DAYS
     Dates: start: 201511

REACTIONS (1)
  - No adverse event [Unknown]
